FAERS Safety Report 14337287 (Version 1)
Quarter: 2017Q4

REPORT INFORMATION
  Report Type: Spontaneous
  Country: US (occurrence: US)
  Receive Date: 20171228
  Receipt Date: 20171228
  Transmission Date: 20180321
  Serious: No
  Sender: FDA-Public Use
  Company Number: None

PATIENT
  Sex: Female

DRUGS (1)
  1. TALTZ [Suspect]
     Active Substance: IXEKIZUMAB
     Indication: PSORIASIS
     Dosage: 80 MG/ML PEN EVERY 2 WEEKS SUBCUTANEOUS
     Route: 058
     Dates: start: 20170316

REACTIONS (2)
  - Injection site swelling [None]
  - Condition aggravated [None]
